FAERS Safety Report 8105321-7 (Version None)
Quarter: 2012Q1

REPORT INFORMATION
  Report Type: 
  Country: None (occurrence: None)
  Receive Date: 20120201
  Receipt Date: 20120124
  Transmission Date: 20120608
  Serious: Yes (Other)
  Sender: FDA-Public Use
  Company Number: PHEH2011US01739

PATIENT
  Sex: Female
  Weight: 72.562 kg

DRUGS (5)
  1. ESTRADERM [Concomitant]
     Dosage: 0.1 MG, UNK
  2. RITALIN [Concomitant]
     Dosage: 5 MG, UNK
  3. VITAMIN D [Concomitant]
     Dosage: 400 IU, UNK
  4. GILENYA [Suspect]
     Indication: MULTIPLE SCLEROSIS
     Dosage: 0.5 MG, QD
     Route: 048
     Dates: start: 20110509
  5. HYZAAR [Concomitant]
     Dosage: UNK UKN, UNK

REACTIONS (13)
  - MULTIPLE SCLEROSIS RELAPSE [None]
  - PAIN [None]
  - PLATELET COUNT INCREASED [None]
  - BLOOD PRESSURE INCREASED [None]
  - GAIT DISTURBANCE [None]
  - CARDIAC DISORDER [None]
  - DYSPNOEA [None]
  - DYSURIA [None]
  - NEUTROPHIL COUNT INCREASED [None]
  - LYMPHOCYTE COUNT DECREASED [None]
  - CHEST DISCOMFORT [None]
  - HYPOAESTHESIA [None]
  - VITAMIN D DEFICIENCY [None]
